FAERS Safety Report 8386605-4 (Version None)
Quarter: 2012Q2

REPORT INFORMATION
  Report Type: 
  Country: None (occurrence: None)
  Receive Date: 20120525
  Receipt Date: 20120223
  Transmission Date: 20120825
  Serious: No
  Sender: FDA-Public Use
  Company Number: US-GLAXOSMITHKLINE-A0967181A

PATIENT
  Age: 58 Year
  Sex: Female

DRUGS (6)
  1. LORAZEPAM [Concomitant]
  2. CITALOPRAM HYDROBROMIDE [Concomitant]
  3. TRAZODONE HCL [Concomitant]
  4. LEVOTHYROXINE SODIUM [Concomitant]
  5. VERAMYST [Suspect]
     Indication: NASAL OEDEMA
     Dosage: 2SPR PER DAY
     Route: 045
     Dates: start: 20120105
  6. VITAMIN TAB [Concomitant]

REACTIONS (4)
  - NASAL CONGESTION [None]
  - DRUG ADMINISTRATION ERROR [None]
  - HEADACHE [None]
  - EPISTAXIS [None]
